FAERS Safety Report 24617391 (Version 2)
Quarter: 2024Q4

REPORT INFORMATION
  Report Type: Spontaneous
  Country: FR (occurrence: FR)
  Receive Date: 20241114
  Receipt Date: 20241127
  Transmission Date: 20250114
  Serious: Yes (Hospitalization, Other)
  Sender: DR REDDYS
  Company Number: None

PATIENT
  Age: 75 Year
  Sex: Male

DRUGS (14)
  1. RITUXIMAB [Suspect]
     Active Substance: RITUXIMAB
     Indication: Richter^s syndrome
     Dosage: 375 MG/M2, C1D1, R-CHOP ON 3-WEEK CYCLE (21 DAYS) (DAY 1)
     Route: 042
     Dates: start: 20241001, end: 20241001
  2. CYCLOPHOSPHAMIDE [Suspect]
     Active Substance: CYCLOPHOSPHAMIDE
     Indication: Richter^s syndrome
     Dosage: 750 MG/M2, C1D1, R-CHOP ON 3-WEEK CYCLE (21 DAYS) (DAY 1), FORMULATION: POWDER FOR SOLUTION FOR INJE
     Route: 042
     Dates: start: 20241001, end: 20241001
  3. DOXORUBICIN [Suspect]
     Active Substance: DOXORUBICIN
     Indication: Richter^s syndrome
     Dosage: 50 MG/M2, C1D1, R-CHOP ON 3-WEEK CYCLE (21 DAYS) (DAY 1), FORMULATION: SOLUTION FOR INFUSION
     Route: 042
     Dates: start: 20241001, end: 20241001
  4. PREDNISONE [Suspect]
     Active Substance: PREDNISONE
     Indication: Richter^s syndrome
     Dosage: R-CHOP THERAPY/D1-D5
     Route: 042
     Dates: start: 20241001
  5. EPCORITAMAB [Suspect]
     Active Substance: EPCORITAMAB
     Indication: Richter^s syndrome
     Dosage: 0.16 MG PRIMING DOSE ON C1D1 (DUOBODY-CD3XCD20)
     Route: 058
     Dates: start: 20241001, end: 20241001
  6. EPCORITAMAB [Suspect]
     Active Substance: EPCORITAMAB
     Dosage: 0.8 MG INTERMEDIATE DOSE ON C1D8 (DUOBODY-CD3XCD20)
     Route: 058
     Dates: start: 20241008, end: 20241008
  7. EPCORITAMAB [Suspect]
     Active Substance: EPCORITAMAB
     Dosage: ON 08-OCT-2024, THE INTERMEDIATE DOSE 0.8 MG WAS RECEIVED., AT CYCLE 1 DAY 15 (C1D15)
     Route: 058
     Dates: start: 20241016
  8. VINCRISTINE [Suspect]
     Active Substance: VINCRISTINE
     Indication: Richter^s syndrome
     Dosage: 1.4 MG/M2 (RECOMMENDED CAP OF 2 MG), C1D1, R-CHOP ON 3-WEEK CYCLE (21 DAYS) (DAY 1)?POWDER FOR SOLUT
     Route: 042
     Dates: start: 20241001, end: 20241001
  9. PREDNISONE [Suspect]
     Active Substance: PREDNISONE
     Indication: Richter^s syndrome
     Dosage: 100 MG/DAY, C1D1, D1-D5, R-CHOP ON 3-WEEK CYCLE (21 DAYS)
     Route: 048
     Dates: start: 20241001
  10. ACETAMINOPHEN [Concomitant]
     Active Substance: ACETAMINOPHEN
     Indication: Premedication
     Dosage: 1 G, START TIME: AT 10:25 HRS
     Route: 042
     Dates: start: 20241001, end: 20241001
  11. ACETAMINOPHEN [Concomitant]
     Active Substance: ACETAMINOPHEN
     Dosage: 1 G, START TIME: AT 10:25 HRS
     Dates: start: 20241001
  12. ACETAMINOPHEN [Concomitant]
     Active Substance: ACETAMINOPHEN
     Route: 042
     Dates: start: 20241016, end: 20241016
  13. POLARAMINE [Concomitant]
     Active Substance: DEXCHLORPHENIRAMINE MALEATE
     Indication: Premedication
     Dosage: 5 MG
     Route: 042
     Dates: start: 20241001, end: 20241001
  14. POLARAMINE [Concomitant]
     Active Substance: DEXCHLORPHENIRAMINE MALEATE
     Route: 042
     Dates: start: 20241016, end: 20241016

REACTIONS (4)
  - Pyrexia [Unknown]
  - Cytokine release syndrome [Recovered/Resolved]
  - Cytokine release syndrome [Not Recovered/Not Resolved]
  - Febrile neutropenia [Not Recovered/Not Resolved]

NARRATIVE: CASE EVENT DATE: 20241014
